FAERS Safety Report 18714002 (Version 2)
Quarter: 2021Q1

REPORT INFORMATION
  Report Type: Spontaneous
  Country: US (occurrence: US)
  Receive Date: 20210107
  Receipt Date: 20210111
  Transmission Date: 20210419
  Serious: Yes (Other)
  Sender: FDA-Public Use
  Company Number: US-UNITED THERAPEUTICS-UNT-2020-020838

PATIENT
  Age: 64 Year
  Sex: Female

DRUGS (2)
  1. REMODULIN [Suspect]
     Active Substance: TREPROSTINIL
     Indication: PULMONARY ARTERIAL HYPERTENSION
     Dosage: UNK, CONTINUING
     Route: 058
     Dates: start: 20190727
  2. REMODULIN [Suspect]
     Active Substance: TREPROSTINIL
     Dosage: 0.0479 ?G/KG, CONTINUING
     Route: 058

REACTIONS (5)
  - Device information output issue [Unknown]
  - Confusional state [Unknown]
  - Hypotension [Unknown]
  - Device use issue [Unknown]
  - Hypoxia [Unknown]

NARRATIVE: CASE EVENT DATE: 20201229
